FAERS Safety Report 16510972 (Version 1)
Quarter: 2019Q3

REPORT INFORMATION
  Report Type: Spontaneous
  Country: DE (occurrence: DE)
  Receive Date: 20190702
  Receipt Date: 20190702
  Transmission Date: 20191004
  Serious: Yes (Other)
  Sender: FDA-Public Use
  Company Number: PHHY2019DE115752

PATIENT
  Age: 44 Year
  Sex: Female

DRUGS (2)
  1. GILENYA [Suspect]
     Active Substance: FINGOLIMOD HYDROCHLORIDE
     Indication: RELAPSING-REMITTING MULTIPLE SCLEROSIS
     Dosage: UNK
     Route: 048
     Dates: end: 201712
  2. OCRELIZUMAB. [Concomitant]
     Active Substance: OCRELIZUMAB
     Indication: RELAPSING-REMITTING MULTIPLE SCLEROSIS
     Dosage: 300 MG
     Route: 065

REACTIONS (5)
  - Quadriparesis [Recovering/Resolving]
  - Muscular weakness [Recovering/Resolving]
  - Central nervous system lesion [Recovering/Resolving]
  - Multiple sclerosis relapse [Unknown]
  - Rebound effect [Recovering/Resolving]

NARRATIVE: CASE EVENT DATE: 2017
